FAERS Safety Report 9360417 (Version 1)
Quarter: 2013Q2

REPORT INFORMATION
  Report Type: Spontaneous
  Country: US (occurrence: None)
  Receive Date: 20130620
  Receipt Date: 20130620
  Transmission Date: 20140414
  Serious: Yes (Hospitalization, Other)
  Sender: FDA-Public Use
  Company Number: None

PATIENT
  Age: 40 Year
  Sex: Male
  Weight: 110.3 kg

DRUGS (6)
  1. AZITHROMYCIN [Suspect]
     Indication: PNEUMONIA
     Dosage: EVERY 24 HRS
     Route: 042
     Dates: start: 20130330, end: 20130331
  2. CEFTRIAXONE [Concomitant]
  3. CARVEDILOL 25 MG [Concomitant]
  4. LISINOPRIL [Concomitant]
  5. CLONAZEPAM [Concomitant]
  6. GUAIFENESIN/CODEINE [Concomitant]

REACTIONS (2)
  - Dyspnoea [None]
  - Hypotension [None]
